FAERS Safety Report 10489367 (Version 1)
Quarter: 2014Q3

REPORT INFORMATION
  Report Type: Spontaneous
  Country: US (occurrence: None)
  Receive Date: 20140815
  Receipt Date: 20140815
  Transmission Date: 20150326
  Serious: Yes (Hospitalization, Other)
  Sender: FDA-Public Use
  Company Number: ADR-2013-02158

PATIENT
  Age: 88 Year
  Sex: Male

DRUGS (2)
  1. MORPHINE INTRATHECAL [Suspect]
     Active Substance: MORPHINE
  2. BACLOFEN INTRATHECAL 500 MCG/ML [Suspect]
     Active Substance: BACLOFEN
     Indication: PAIN

REACTIONS (1)
  - Incorrect route of drug administration [None]

NARRATIVE: CASE EVENT DATE: 20131120
